FAERS Safety Report 8316040-6 (Version None)
Quarter: 2012Q2

REPORT INFORMATION
  Report Type: 
  Country: None (occurrence: None)
  Receive Date: 20120427
  Receipt Date: 20120420
  Transmission Date: 20120825
  Serious: Yes (Other)
  Sender: FDA-Public Use
  Company Number: US-AMGEN-USASP2012025307

PATIENT
  Age: 41 Year
  Sex: Female

DRUGS (2)
  1. ENBREL [Suspect]
     Indication: RHEUMATOID ARTHRITIS
     Dosage: 50 MG, QWK
     Dates: start: 20060601
  2. TREXALL [Concomitant]
     Dosage: 1 MG, UNK
     Dates: start: 20100101

REACTIONS (8)
  - INCONTINENCE [None]
  - BACK PAIN [None]
  - VAGINAL INFECTION [None]
  - OEDEMA PERIPHERAL [None]
  - DEPRESSION [None]
  - PARAESTHESIA [None]
  - HUMAN BITE [None]
  - URINARY TRACT INFECTION [None]
